FAERS Safety Report 6016145-9 (Version None)
Quarter: 2008Q4

REPORT INFORMATION
  Report Type: 
  Country: None (occurrence: None)
  Receive Date: 20081222
  Receipt Date: 20081215
  Transmission Date: 20090506
  Serious: Yes (Hospitalization)
  Sender: FDA-Public Use
  Company Number: JP-AVENTIS-200813326JP

PATIENT
  Age: 39 Year
  Sex: Female
  Weight: 47 kg

DRUGS (1)
  1. LASIX [Suspect]
     Dosage: DOSE: UNK
     Route: 048

REACTIONS (5)
  - DRUG ABUSE [None]
  - HYPOAESTHESIA [None]
  - HYPOKALAEMIA [None]
  - MUSCULAR WEAKNESS [None]
  - PSEUDO-BARTTER SYNDROME [None]
